FAERS Safety Report 11571169 (Version 1)
Quarter: 2015Q3

REPORT INFORMATION
  Report Type: Spontaneous
  Country: US (occurrence: US)
  Receive Date: 20150929
  Receipt Date: 20150929
  Transmission Date: 20151125
  Serious: No
  Sender: FDA-Public Use
  Company Number: US-GLAXOSMITHKLINE-US2015GSK112433

PATIENT
  Age: 49 Year
  Sex: Male

DRUGS (1)
  1. TANZEUM [Suspect]
     Active Substance: ALBIGLUTIDE
     Indication: TYPE 2 DIABETES MELLITUS
     Dosage: 50 MG, WE
     Route: 042

REACTIONS (7)
  - Cough [Unknown]
  - Blood glucose increased [Unknown]
  - Drug dose omission [Unknown]
  - Device use error [Unknown]
  - Accidental exposure to product [Unknown]
  - Abdominal pain upper [Unknown]
  - Respiratory tract congestion [Unknown]

NARRATIVE: CASE EVENT DATE: 20150713
